FAERS Safety Report 14546101 (Version 2)
Quarter: 2018Q1

REPORT INFORMATION
  Report Type: Spontaneous
  Country: US (occurrence: US)
  Receive Date: 20180219
  Receipt Date: 20180301
  Transmission Date: 20180509
  Serious: Yes (Other)
  Sender: FDA-Public Use
  Company Number: US-ROCHE-2075489

PATIENT
  Sex: Male

DRUGS (6)
  1. CIPROFLOXACIN HCL [Concomitant]
     Active Substance: CIPROFLOXACIN HYDROCHLORIDE
  2. ERYTHROMYCIN. [Concomitant]
     Active Substance: ERYTHROMYCIN
  3. LUCENTIS [Suspect]
     Active Substance: RANIBIZUMAB
     Indication: NEOVASCULAR AGE-RELATED MACULAR DEGENERATION
     Dosage: INJECT 0.5 MG INTO LEFT EYE ONCE A MONTH, 0.5MG 0.05ML
     Route: 050
     Dates: start: 201212
  4. GENTAMYCIN SULFATE [Concomitant]
     Active Substance: GENTAMICIN SULFATE
  5. CUBICIN [Concomitant]
     Active Substance: DAPTOMYCIN
  6. ACETAMINOPHEN/OXYCODONE [Concomitant]
     Active Substance: ACETAMINOPHEN\OXYCODONE HYDROCHLORIDE

REACTIONS (1)
  - Eye haemorrhage [Not Recovered/Not Resolved]
